FAERS Safety Report 20368143 (Version 1)
Quarter: 2022Q1

REPORT INFORMATION
  Report Type: Spontaneous
  Country: FR (occurrence: FR)
  Receive Date: 20220124
  Receipt Date: 20220124
  Transmission Date: 20220423
  Serious: Yes (Other)
  Sender: FDA-Public Use
  Company Number: FR-BIOCODEX2-2022000015

PATIENT

DRUGS (2)
  1. DIACOMIT [Suspect]
     Active Substance: STIRIPENTOL
     Dosage: 750 MG IN THE MORNING AND 500 MG IN THE EVENING
     Route: 048
  2. DIACOMIT [Suspect]
     Active Substance: STIRIPENTOL
     Dosage: 500 MG IN THE MORNING, 500 MG IN THE EVENING AND 3 CAPSULES OF 250 MG PER WEEK
     Route: 048

REACTIONS (4)
  - Seizure [Unknown]
  - Apathy [Recovering/Resolving]
  - Hypotonia [Recovering/Resolving]
  - Product use in unapproved indication [Unknown]
